FAERS Safety Report 4819252-9 (Version None)
Quarter: 2005Q4

REPORT INFORMATION
  Report Type: 
  Country: None (occurrence: None)
  Receive Date: 20051102
  Receipt Date: 20051102
  Transmission Date: 20060501
  Serious: Yes (Other)
  Sender: FDA-Public Use
  Company Number: None

PATIENT

DRUGS (2)
  1. SENSORCAINE [Suspect]
     Indication: SPINAL ANAESTHESIA
     Dates: start: 20050901, end: 20051001
  2. BUPIVACAINE [Suspect]
     Dates: start: 20051001, end: 20051015

REACTIONS (2)
  - DRUG INEFFECTIVE [None]
  - PHARMACEUTICAL PRODUCT COMPLAINT [None]
